FAERS Safety Report 5815352-5 (Version None)
Quarter: 2008Q3

REPORT INFORMATION
  Report Type: 
  Country: None (occurrence: None)
  Receive Date: 20080718
  Receipt Date: 20080707
  Transmission Date: 20090109
  Serious: Yes (Other)
  Sender: FDA-Public Use
  Company Number: US-PFIZER INC-2008020116

PATIENT
  Sex: Female
  Weight: 45.4 kg

DRUGS (11)
  1. XALATAN [Suspect]
     Indication: NORMAL TENSION GLAUCOMA
     Route: 047
     Dates: start: 20080201, end: 20080201
  2. IBUPROFEN [Suspect]
  3. XOPENEX [Suspect]
     Dates: start: 20080201, end: 20080201
  4. LOPRESSOR [Concomitant]
  5. ZESTRIL [Concomitant]
  6. FUROSEMIDE [Concomitant]
  7. MEVACOR [Concomitant]
  8. ACTONEL [Concomitant]
  9. ONE-A-DAY [Concomitant]
  10. CALCIUM [Concomitant]
  11. ACETYLSALICYLIC ACID SRT [Concomitant]

REACTIONS (13)
  - BACK PAIN [None]
  - BLINDNESS [None]
  - BLOOD PRESSURE INCREASED [None]
  - CHEST DISCOMFORT [None]
  - CHEST PAIN [None]
  - COUGH [None]
  - DIPLOPIA [None]
  - DIZZINESS [None]
  - DRUG HYPERSENSITIVITY [None]
  - MALAISE [None]
  - MYALGIA [None]
  - PAIN [None]
  - UPPER RESPIRATORY TRACT INFECTION [None]
